FAERS Safety Report 7081949-0 (Version None)
Quarter: 2010Q4

REPORT INFORMATION
  Report Type: 
  Country: None (occurrence: None)
  Receive Date: 20101103
  Receipt Date: 20101028
  Transmission Date: 20110411
  Serious: Yes (Other)
  Sender: FDA-Public Use
  Company Number: FR-PFIZER INC-2010109205

PATIENT
  Age: 62 Year
  Sex: Female
  Weight: 70 kg

DRUGS (4)
  1. SUTENT [Suspect]
     Indication: RENAL CANCER METASTATIC
     Dosage: 50 MG, 1X/DAY
     Route: 048
     Dates: start: 20100104, end: 20100509
  2. CLINOMEL [Concomitant]
     Dosage: UNK
  3. VASTAREL [Concomitant]
     Dosage: UNK
  4. LEVOTHYROXINE SODIUM [Concomitant]
     Indication: HYPOTHYROIDISM
     Dosage: 50 UNK, 1X/DAY
     Route: 048
     Dates: start: 20100129

REACTIONS (3)
  - HYPERTHYROIDISM [None]
  - HYPOTHYROIDISM [None]
  - SKIN HYPERPIGMENTATION [None]
